FAERS Safety Report 19411258 (Version 1)
Quarter: 2021Q2

REPORT INFORMATION
  Report Type: Spontaneous
  Country: US (occurrence: US)
  Receive Date: 20210614
  Receipt Date: 20210614
  Transmission Date: 20210717
  Serious: No
  Sender: FDA-Public Use
  Company Number: None

PATIENT
  Age: 82 Year
  Sex: Male
  Weight: 90.45 kg

DRUGS (17)
  1. HYDROCORTISONE 10MG [Concomitant]
  2. LEVOTHYROXINE 125MCG [Concomitant]
     Active Substance: LEVOTHYROXINE SODIUM
  3. JANUMET 50?500MG [Concomitant]
  4. TAMSULOSIN 0.4MG [Concomitant]
     Active Substance: TAMSULOSIN
  5. AMLODIPINE 2.5MG [Concomitant]
     Active Substance: AMLODIPINE BESYLATE
  6. METOPROLOL TARTRATE 50MG [Concomitant]
     Active Substance: METOPROLOL TARTRATE
  7. MICONAZOLE NITRATE 2% [Concomitant]
     Active Substance: MICONAZOLE NITRATE
  8. ALBUTEROL 108MCG [Concomitant]
     Active Substance: ALBUTEROL
  9. ASPIRIN 81MG [Concomitant]
     Active Substance: ASPIRIN
  10. OMEGA 3 FISH OIL 500MG [Concomitant]
  11. ALPRAZOLAM 0.25MG [Concomitant]
     Active Substance: ALPRAZOLAM
  12. APIXABAN 5MG [Concomitant]
     Active Substance: APIXABAN
  13. GLIMEPIRIDE 2MG [Concomitant]
     Active Substance: GLIMEPIRIDE
  14. MEKTOVI [Suspect]
     Active Substance: BINIMETINIB
     Indication: MALIGNANT MELANOMA
     Route: 048
     Dates: start: 20191218, end: 20210614
  15. BRAFTOVI [Suspect]
     Active Substance: ENCORAFENIB
     Indication: MALIGNANT MELANOMA
     Route: 048
     Dates: start: 20191218, end: 20210614
  16. ATORVASTATIN 40MG [Concomitant]
     Active Substance: ATORVASTATIN
  17. OMEPRAZOLE 20MG [Concomitant]
     Active Substance: OMEPRAZOLE

REACTIONS (1)
  - Disease progression [None]

NARRATIVE: CASE EVENT DATE: 20210614
